FAERS Safety Report 4753187-5 (Version None)
Quarter: 2005Q3

REPORT INFORMATION
  Report Type: 
  Country: None (occurrence: None)
  Receive Date: 20050824
  Receipt Date: 20050815
  Transmission Date: 20060218
  Serious: Yes (Other)
  Sender: FDA-Public Use
  Company Number: 2005110298

PATIENT
  Age: 63 Year
  Sex: Female
  Weight: 72.5755 kg

DRUGS (11)
  1. NEURONTIN [Suspect]
     Indication: NERVE INJURY
     Dosage: 400 MG
  2. NEURONTIN [Suspect]
     Indication: PAIN
     Dosage: 400 MG
  3. LIPITOR [Suspect]
     Indication: BLOOD CHOLESTEROL
     Dosage: 20 MG (20 MG 1 IN 1 D)
     Dates: end: 20050701
  4. FOSAMAX [Concomitant]
  5. CENTRUM SILVER (ASCORBIC ACID, CALCIUM, MINERALS NOS, RETINOL, TOCOPHE [Concomitant]
  6. STOOL SOFTENER (DOCUSATE SODIUM) [Concomitant]
  7. NEXIUM [Concomitant]
  8. CALCIUM (CALCIUM) [Concomitant]
  9. LORCET-HD [Concomitant]
  10. OXYCODONE HCL [Concomitant]
  11. ALPRAZOLAM [Concomitant]

REACTIONS (16)
  - ABASIA [None]
  - BLOOD TRIGLYCERIDES INCREASED [None]
  - CAROTID ARTERY ATHEROMA [None]
  - DRUG EFFECT DECREASED [None]
  - DRUG INEFFECTIVE [None]
  - IATROGENIC INJURY [None]
  - MONOPARESIS [None]
  - MUSCLE DISORDER [None]
  - MYALGIA [None]
  - NERVE INJURY [None]
  - NERVOUS SYSTEM DISORDER [None]
  - PAIN [None]
  - PAIN IN EXTREMITY [None]
  - PROCEDURAL COMPLICATION [None]
  - PROCEDURAL PAIN [None]
  - SURGERY [None]
